FAERS Safety Report 22929740 (Version 2)
Quarter: 2024Q4

REPORT INFORMATION
  Report Type: Spontaneous
  Country: US (occurrence: US)
  Receive Date: 20230911
  Receipt Date: 20241001
  Transmission Date: 20250115
  Serious: No
  Sender: SANOFI AVENTIS
  Company Number: US-SA-SAC20230905000221

PATIENT
  Age: 47 Year
  Sex: Female
  Weight: 85.5 kg

DRUGS (1)
  1. DUPIXENT [Suspect]
     Active Substance: DUPILUMAB
     Indication: Nasal polyps
     Dosage: 300 MG, QOW
     Route: 058

REACTIONS (7)
  - Ear discomfort [Unknown]
  - Sinus disorder [Unknown]
  - Drug withdrawal syndrome [Unknown]
  - Wheezing [Unknown]
  - Respiratory tract congestion [Unknown]
  - Productive cough [Not Recovered/Not Resolved]
  - Product storage error [Unknown]
